FAERS Safety Report 19171240 (Version 1)
Quarter: 2021Q2

REPORT INFORMATION
  Report Type: Spontaneous
  Country: GB (occurrence: GB)
  Receive Date: 20210423
  Receipt Date: 20210423
  Transmission Date: 20210717
  Serious: Yes (Other)
  Sender: FDA-Public Use
  Company Number: GB-SUN PHARMACEUTICAL INDUSTRIES LTD-2021RR-292648

PATIENT
  Age: 33 Year
  Sex: Female

DRUGS (12)
  1. DOCETAXEL. [Suspect]
     Active Substance: DOCETAXEL
     Indication: BREAST CANCER
     Dosage: 150 MILLIGRAM, 1 DOSE/3 WEEKS
     Route: 042
     Dates: start: 20160608, end: 20160720
  2. PERTUZUMAB. [Suspect]
     Active Substance: PERTUZUMAB
     Dosage: 420 MILLIGRAM, 1 DOSE/3 WEEKS
     Route: 042
     Dates: start: 20160629, end: 20171218
  3. TRASTUZUMAB. [Suspect]
     Active Substance: TRASTUZUMAB
     Indication: BREAST CANCER
     Dosage: 840 MILLIGRAM, UNK
     Route: 042
     Dates: start: 20171108, end: 20171108
  4. DOCETAXEL. [Suspect]
     Active Substance: DOCETAXEL
     Dosage: 120 MILLIGRAM, 1 DOSE/3 WEEKS
     Route: 042
     Dates: start: 20160720
  5. PERTUZUMAB. [Suspect]
     Active Substance: PERTUZUMAB
     Indication: BREAST CANCER
     Dosage: 840 MILLIGRAM, 1 DOSE/3 WEEKS, LOADING DOSE
     Route: 042
     Dates: start: 20160608, end: 20160608
  6. TRASTUZUMAB. [Suspect]
     Active Substance: TRASTUZUMAB
     Dosage: 651 MILLIGRAM, 1 DOSE/3 WEEKS
     Route: 042
     Dates: start: 20171220
  7. TRASTUZUMAB. [Suspect]
     Active Substance: TRASTUZUMAB
     Dosage: 693 MILLIGRAM, 1 DOSE/3 WEEKS
     Route: 042
     Dates: start: 20170720, end: 20171024
  8. TRASTUZUMAB. [Suspect]
     Active Substance: TRASTUZUMAB
     Dosage: 619.5 MILLIGRAM, UNK
     Route: 042
     Dates: start: 20171129, end: 20171129
  9. PERTUZUMAB. [Suspect]
     Active Substance: PERTUZUMAB
     Dosage: 420 MILLIGRAM, 1 DOSE/3 WEEKS
     Route: 042
     Dates: start: 20171129, end: 20171218
  10. LETROZOLE. [Suspect]
     Active Substance: LETROZOLE
     Indication: BREAST CANCER
     Dosage: 2.5 MILLIGRAM, DAILY
     Route: 048
     Dates: start: 20171129
  11. TAMOXIFEN [Suspect]
     Active Substance: TAMOXIFEN
     Indication: BREAST CANCER
     Dosage: 20 MILLIGRAM, DAILY
     Route: 048
     Dates: start: 20161023, end: 20171129
  12. TRASTUZUMAB. [Suspect]
     Active Substance: TRASTUZUMAB
     Dosage: 693 MILLIGRAM, 1 DOSE/3 WEEKS
     Route: 041
     Dates: start: 20160608, end: 20160720

REACTIONS (1)
  - Lower respiratory tract infection [Recovered/Resolved]

NARRATIVE: CASE EVENT DATE: 20180104
